FAERS Safety Report 10037334 (Version 1)
Quarter: 2014Q1

REPORT INFORMATION
  Report Type: Spontaneous
  Country: US (occurrence: None)
  Receive Date: 20140306
  Receipt Date: 20140306
  Transmission Date: 20141002
  Serious: Yes (Other)
  Sender: FDA-Public Use
  Company Number: 163-21880-13063927

PATIENT
  Age: 85 Year
  Sex: Male

DRUGS (6)
  1. REVLIMID [Suspect]
     Indication: MYELODYSPLASTIC SYNDROME
     Dosage: 10 MG, 21 IN 28 D, PO
     Route: 048
     Dates: start: 20130615, end: 20130618
  2. WATER PILL (OTHER THERAPEUTIC PRODUCTS (PILL) [Concomitant]
  3. ANTIBIOTIC (ANTIBIOTICS) (UNKNOWN) [Concomitant]
  4. SYMBICORT (SYMBICORT TURBUHALER ^DRACO^) (UNKNOWN) [Concomitant]
  5. PROAIR (FLUTICASONE PROPRIONATE) (UNKNOWN) [Concomitant]
  6. VITAMINS (VITAMINS) [Concomitant]

REACTIONS (7)
  - Full blood count decreased [None]
  - Rash generalised [None]
  - Pruritus generalised [None]
  - Insomnia [None]
  - Local swelling [None]
  - Pyrexia [None]
  - Dyspnoea [None]
